FAERS Safety Report 4393612-5 (Version None)
Quarter: 2004Q3

REPORT INFORMATION
  Report Type: 
  Country: None (occurrence: None)
  Receive Date: 20040706
  Receipt Date: 20040706
  Transmission Date: 20050211
  Serious: Yes (Hospitalization)
  Sender: FDA-Public Use
  Company Number: None

PATIENT
  Age: 83 Year
  Sex: Male

DRUGS (1)
  1. NAPROXEN [Suspect]
     Indication: ARTHRITIS
     Dosage: 500 MG BID PO
     Route: 048

REACTIONS (3)
  - GASTRITIS EROSIVE [None]
  - HAEMORRHAGE [None]
  - ULCER [None]
